FAERS Safety Report 7556630-1 (Version None)
Quarter: 2011Q2

REPORT INFORMATION
  Report Type: 
  Country: None (occurrence: None)
  Receive Date: 20110616
  Receipt Date: 20110616
  Transmission Date: 20111010
  Serious: Yes (Hospitalization)
  Sender: FDA-Public Use
  Company Number: None

PATIENT
  Sex: Female
  Weight: 77.3 kg

DRUGS (1)
  1. ERBITUX [Suspect]
     Dosage: 2900 MG

REACTIONS (1)
  - ABSCESS ORAL [None]
